FAERS Safety Report 7404011-3 (Version None)
Quarter: 2011Q2

REPORT INFORMATION
  Report Type: 
  Country: None (occurrence: None)
  Receive Date: 20110408
  Receipt Date: 20101118
  Transmission Date: 20111010
  Serious: Yes (Hospitalization)
  Sender: FDA-Public Use
  Company Number: US-BAYER-201033396NA

PATIENT
  Age: 19 Year
  Sex: Female
  Weight: 59.864 kg

DRUGS (6)
  1. YAZ [Suspect]
     Indication: CONTRACEPTION
     Dosage: UNK
     Dates: start: 20070501, end: 20070901
  2. YASMIN [Suspect]
     Indication: CONTRACEPTION
     Dosage: UNK UNK, UNK
     Route: 048
     Dates: start: 20070501, end: 20070901
  3. OCELLA [Suspect]
     Indication: CONTRACEPTION
     Dosage: UNK
     Dates: start: 20070501, end: 20070901
  4. YASMIN [Suspect]
     Indication: MENORRHAGIA
  5. YAZ [Suspect]
     Indication: MENORRHAGIA
  6. OCELLA [Suspect]
     Indication: MENORRHAGIA

REACTIONS (2)
  - MENTAL DISORDER [None]
  - DEEP VEIN THROMBOSIS [None]
